FAERS Safety Report 6235980-5 (Version None)
Quarter: 2009Q2

REPORT INFORMATION
  Report Type: 
  Country: None (occurrence: None)
  Receive Date: 20090617
  Receipt Date: 20090617
  Transmission Date: 20091009
  Serious: No
  Sender: FDA-Public Use
  Company Number: None

PATIENT
  Age: 67 Year
  Sex: Female
  Weight: 68.0396 kg

DRUGS (1)
  1. NASALCROM [Suspect]
     Indication: SEASONAL ALLERGY
     Dosage: DAILY

REACTIONS (1)
  - PAROSMIA [None]
